FAERS Safety Report 16207400 (Version 1)
Quarter: 2019Q2

REPORT INFORMATION
  Report Type: Spontaneous
  Country: US (occurrence: US)
  Receive Date: 20190417
  Receipt Date: 20190417
  Transmission Date: 20190711
  Serious: No
  Sender: FDA-Public Use
  Company Number: PHEH2019US015997

PATIENT
  Sex: Male

DRUGS (1)
  1. ZYKADIA [Suspect]
     Active Substance: CERITINIB
     Indication: CARCINOID TUMOUR
     Dosage: 150 MG, TID
     Route: 048

REACTIONS (2)
  - Fatigue [Unknown]
  - Chest discomfort [Unknown]
